FAERS Safety Report 9850256 (Version 1)
Quarter: 2014Q1

REPORT INFORMATION
  Report Type: Spontaneous
  Country: CA (occurrence: CA)
  Receive Date: 20140128
  Receipt Date: 20140128
  Transmission Date: 20141002
  Serious: Yes (Other)
  Sender: FDA-Public Use
  Company Number: CA-VIIV HEALTHCARE LIMITED-A1058332A

PATIENT
  Age: 46 Year
  Sex: Male

DRUGS (12)
  1. CELSENTRI [Suspect]
     Indication: PRODUCT USED FOR UNKNOWN INDICATION
     Route: 065
  2. IMOVANE [Suspect]
     Indication: PRODUCT USED FOR UNKNOWN INDICATION
     Dosage: 7.5MG AS REQUIRED
     Route: 048
  3. INTELENCE [Suspect]
     Indication: PRODUCT USED FOR UNKNOWN INDICATION
     Route: 065
  4. PREZISTA [Suspect]
     Indication: PRODUCT USED FOR UNKNOWN INDICATION
     Dosage: 800MG UNKNOWN
     Route: 065
  5. RITONAVIR [Suspect]
     Indication: PRODUCT USED FOR UNKNOWN INDICATION
     Dosage: 100MG UNKNOWN
     Route: 065
  6. ISENTRESS [Suspect]
     Indication: PRODUCT USED FOR UNKNOWN INDICATION
     Route: 065
  7. BARACLUDE [Suspect]
     Indication: PRODUCT USED FOR UNKNOWN INDICATION
     Route: 065
  8. EFFEXOR XR [Concomitant]
  9. NORTRIPTYLINE [Concomitant]
  10. OXYCODONE [Concomitant]
  11. OXYCONTIN [Concomitant]
  12. GABAPENTIN [Concomitant]

REACTIONS (4)
  - Fall [Unknown]
  - Joint dislocation [Recovered/Resolved]
  - Lower limb fracture [Recovered/Resolved]
  - Somnambulism [Recovered/Resolved]
